FAERS Safety Report 6315634-7 (Version None)
Quarter: 2009Q3

REPORT INFORMATION
  Report Type: 
  Country: None (occurrence: None)
  Receive Date: 20090818
  Receipt Date: 20090803
  Transmission Date: 20100115
  Serious: Yes (Hospitalization, Other)
  Sender: FDA-Public Use
  Company Number: 001460

PATIENT
  Age: 12 Year
  Sex: Male

DRUGS (4)
  1. ALPRAZOLAM [Suspect]
     Indication: ANXIETY
     Dosage: (ONE TIME DOSE OF 0.25MG) 1 DAY UNTIL NOT CONTINUING;
  2. ALPRAZOLAM [Suspect]
     Indication: CHEST PAIN
     Dosage: (ONE TIME DOSE OF 0.25MG) 1 DAY UNTIL NOT CONTINUING;
  3. ESCITALOPRAM [Suspect]
     Indication: ANXIETY
     Dosage: (10 MG, ONE TIME DOE OF 10 MG) 1 DAY UNTIL NOT CONTINUING
  4. ESCITALOPRAM [Suspect]
     Indication: CHEST PAIN
     Dosage: (10 MG, ONE TIME DOE OF 10 MG) 1 DAY UNTIL NOT CONTINUING

REACTIONS (12)
  - CHOREA [None]
  - CLONUS [None]
  - DYSKINESIA [None]
  - DYSPHEMIA [None]
  - DYSTONIA [None]
  - EXTENSOR PLANTAR RESPONSE [None]
  - EXTRAPYRAMIDAL DISORDER [None]
  - HYPERREFLEXIA [None]
  - HYPERTONIA [None]
  - MUSCLE RIGIDITY [None]
  - POSTURE ABNORMAL [None]
  - TREMOR [None]
